FAERS Safety Report 9372863 (Version 1)
Quarter: 2013Q2

REPORT INFORMATION
  Report Type: Report from Study
  Country: US (occurrence: US)
  Receive Date: 20130627
  Receipt Date: 20130627
  Transmission Date: 20140414
  Serious: Yes (Death)
  Sender: FDA-Public Use
  Company Number: PHEH2013US013739

PATIENT
  Age: 87 Year
  Sex: Female

DRUGS (1)
  1. GLEEVEC [Suspect]
     Dosage: 400 MG,DAILY
     Route: 048
     Dates: start: 20100806

REACTIONS (1)
  - Death [Fatal]
